FAERS Safety Report 8555685-5 (Version None)
Quarter: 2012Q3

REPORT INFORMATION
  Report Type: 
  Country: None (occurrence: None)
  Receive Date: 20120801
  Receipt Date: 20120723
  Transmission Date: 20120928
  Serious: No
  Sender: FDA-Public Use
  Company Number: US-009507513-1206USA04200

PATIENT

DRUGS (1)
  1. JANUMET [Suspect]
     Indication: DIABETES MELLITUS
     Dosage: 500MG/50
     Route: 048
     Dates: start: 20110101, end: 20120522

REACTIONS (1)
  - RENAL DISORDER [None]
